FAERS Safety Report 18856004 (Version 1)
Quarter: 2021Q1

REPORT INFORMATION
  Report Type: Spontaneous
  Country: FR (occurrence: FR)
  Receive Date: 20210206
  Receipt Date: 20210206
  Transmission Date: 20210420
  Serious: Yes (Death, Other)
  Sender: FDA-Public Use
  Company Number: FR-MICRO LABS LIMITED-ML2021-00346

PATIENT
  Age: 57 Year
  Sex: Male

DRUGS (5)
  1. SILDENAFIL. [Suspect]
     Active Substance: SILDENAFIL
  2. BROMAZEPAM [Suspect]
     Active Substance: BROMAZEPAM
  3. COCAINE [Suspect]
     Active Substance: COCAINE
  4. NEVIRAPINE. [Suspect]
     Active Substance: NEVIRAPINE
     Indication: HIV INFECTION
  5. 4?METHYLPENTEDRONE [Suspect]
     Active Substance: 4-METHYLPENTEDRONE

REACTIONS (10)
  - Congestive hepatopathy [Fatal]
  - Petechiae [Fatal]
  - Hypoxia [Fatal]
  - Dilatation ventricular [Fatal]
  - Cyanosis [Fatal]
  - Cardiac disorder [Fatal]
  - Hepatic steatosis [Fatal]
  - Toxicity to various agents [Fatal]
  - Pulmonary oedema [Fatal]
  - Conjunctival hyperaemia [Fatal]
